APPROVED DRUG PRODUCT: OLMESARTAN MEDOXOMIL
Active Ingredient: OLMESARTAN MEDOXOMIL
Strength: 20MG
Dosage Form/Route: TABLET;ORAL
Application: A206631 | Product #002
Applicant: LUPIN LTD
Approved: Apr 27, 2017 | RLD: No | RS: No | Type: DISCN